FAERS Safety Report 14346658 (Version 1)
Quarter: 2018Q1

REPORT INFORMATION
  Report Type: Spontaneous
  Country: GB (occurrence: GB)
  Receive Date: 20180103
  Receipt Date: 20180103
  Transmission Date: 20180509
  Serious: Yes (Hospitalization)
  Sender: FDA-Public Use
  Company Number: GB-PFIZER INC-2017553000

PATIENT
  Age: 13 Year
  Sex: Male
  Weight: 50 kg

DRUGS (1)
  1. ZOLEDRONIC ACID [Suspect]
     Active Substance: ZOLEDRONIC ACID
     Indication: DUCHENNE MUSCULAR DYSTROPHY
     Dosage: 2.8 MG, 1X/DAY
     Route: 042
     Dates: start: 20171207, end: 20171207

REACTIONS (2)
  - Product use in unapproved indication [Unknown]
  - C-reactive protein increased [Recovering/Resolving]

NARRATIVE: CASE EVENT DATE: 20171207
